FAERS Safety Report 12462565 (Version 2)
Quarter: 2016Q3

REPORT INFORMATION
  Report Type: Spontaneous
  Country: DE (occurrence: DE)
  Receive Date: 20160614
  Receipt Date: 20160722
  Transmission Date: 20161109
  Serious: Yes (Death)
  Sender: FDA-Public Use
  Company Number: DE-ROCHE-1774952

PATIENT
  Sex: Female
  Weight: 55 kg

DRUGS (26)
  1. CYCLOPHOSPHAMID [Suspect]
     Active Substance: CYCLOPHOSPHAMIDE
     Indication: DIFFUSE LARGE B-CELL LYMPHOMA
     Dosage: FIRST CYCLE?5CYCLES, ACCORDING TO R-CHOP REGIMEN
     Route: 065
     Dates: start: 20151216
  2. CYCLOPHOSPHAMID [Suspect]
     Active Substance: CYCLOPHOSPHAMIDE
     Dosage: 2ND CYCLE OF THE CHOP THERAPY
     Route: 065
     Dates: start: 20160114
  3. PREDNISOLON [Suspect]
     Active Substance: PREDNISOLONE
     Dosage: 4TH CYCLE OF THE CHOP THERAPY
     Route: 065
     Dates: start: 20160223
  4. MABTHERA [Suspect]
     Active Substance: RITUXIMAB
     Dosage: 2ND CYCLE OF THE R-CHOP THERAPY
     Route: 042
     Dates: start: 20160114
  5. MABTHERA [Suspect]
     Active Substance: RITUXIMAB
     Dosage: 5 TH CYCLE OF THE R-CHOP THERAPY
     Route: 042
     Dates: start: 20160315
  6. HYDROXYDAUNORUBICIN [Suspect]
     Active Substance: DOXORUBICIN
     Dosage: 5TH CYCLE OF THE CHOP THERAPY
     Route: 065
     Dates: start: 20160315
  7. PREDNISOLON [Suspect]
     Active Substance: PREDNISOLONE
     Dosage: 5TH CYCLE OF THE CHOP THERAPY.
     Route: 065
     Dates: start: 20160315
  8. MABTHERA [Suspect]
     Active Substance: RITUXIMAB
     Dosage: 3RD CYCLE OF THE R-CHOP THERAPY
     Route: 042
     Dates: start: 20160202
  9. MABTHERA [Suspect]
     Active Substance: RITUXIMAB
     Dosage: 4 TH CYCLE OF THE R-CHOP THERAPY
     Route: 042
     Dates: start: 20160223
  10. CYCLOPHOSPHAMID [Suspect]
     Active Substance: CYCLOPHOSPHAMIDE
     Dosage: 4TH CYCLE OF THE CHOP THERAPY
     Route: 065
     Dates: start: 20160223
  11. HYDROXYDAUNORUBICIN [Suspect]
     Active Substance: DOXORUBICIN
     Dosage: 3RD CYCLE OF THE CHOP THERAPY
     Route: 065
     Dates: start: 20160202
  12. MABTHERA [Suspect]
     Active Substance: RITUXIMAB
     Indication: DIFFUSE LARGE B-CELL LYMPHOMA
     Dosage: FIRST CYCLE?= 585 MG, 5 CYCLES, ACCORDING TO R-CHOP REGIMEN
     Route: 042
     Dates: start: 20151216, end: 20160315
  13. CYCLOPHOSPHAMID [Suspect]
     Active Substance: CYCLOPHOSPHAMIDE
     Dosage: 3RD CYCLE OF THE CHOP THERAPY
     Route: 065
     Dates: start: 20160202
  14. HYDROXYDAUNORUBICIN [Suspect]
     Active Substance: DOXORUBICIN
     Dosage: 2ND CYCLE OF THE CHOP THERAPY
     Route: 065
     Dates: start: 20160114
  15. VINCRISTIN [Suspect]
     Active Substance: VINCRISTINE
     Dosage: 3RD CYCLE OF THE CHOP THERAPY.
     Route: 065
     Dates: start: 20160202
  16. VINCRISTIN [Suspect]
     Active Substance: VINCRISTINE
     Dosage: 4TH CYCLE OF THE CHOP THERAPY
     Route: 065
     Dates: start: 20160223
  17. HYDROXYDAUNORUBICIN [Suspect]
     Active Substance: DOXORUBICIN
     Indication: DIFFUSE LARGE B-CELL LYMPHOMA
     Dosage: FIRST CYCLE?5CYCLES, ACCORDING TO R-CHOP REGIMEN
     Route: 065
     Dates: start: 20151216
  18. HYDROXYDAUNORUBICIN [Suspect]
     Active Substance: DOXORUBICIN
     Dosage: 4TH CYCLE OF THE CHOP THERAPY
     Route: 065
     Dates: start: 20160223
  19. VINCRISTIN [Suspect]
     Active Substance: VINCRISTINE
     Indication: DIFFUSE LARGE B-CELL LYMPHOMA
     Dosage: FIRST CYCLE?5CYCLES, ACCORDING TO R-CHOP REGIMEN
     Route: 065
     Dates: start: 20151216
  20. VINCRISTIN [Suspect]
     Active Substance: VINCRISTINE
     Dosage: 2ND CYCLE OF THE CHOP THERAPY
     Route: 065
     Dates: start: 20160114
  21. VINCRISTIN [Suspect]
     Active Substance: VINCRISTINE
     Dosage: 5TH CYCLE OF THE CHOP THERAPY.
     Route: 065
     Dates: start: 20160315
  22. CYCLOPHOSPHAMID [Suspect]
     Active Substance: CYCLOPHOSPHAMIDE
     Dosage: 5TH CYCLE OF THE CHOP THERAPY
     Route: 065
     Dates: start: 20160315
  23. PREDNISOLON [Suspect]
     Active Substance: PREDNISOLONE
     Indication: DIFFUSE LARGE B-CELL LYMPHOMA
     Dosage: FIRST CYCLE?5CYCLES, ACCORDING TO R-CHOP REGIMEN
     Route: 065
     Dates: start: 20151216
  24. PREDNISOLON [Suspect]
     Active Substance: PREDNISOLONE
     Dosage: 2ND CYCLE OF THE CHOP THERAPY.
     Route: 065
     Dates: start: 20160114
  25. PREDNISOLON [Suspect]
     Active Substance: PREDNISOLONE
     Dosage: 3RD CYCLE OF THE CHOP THERAPY
     Route: 065
     Dates: start: 20160202
  26. COTRIMOXAZOL [Concomitant]
     Active Substance: SULFAMETHOXAZOLE\TRIMETHOPRIM
     Route: 065
     Dates: end: 201603

REACTIONS (1)
  - Progressive multifocal leukoencephalopathy [Fatal]
